FAERS Safety Report 5448355-3 (Version None)
Quarter: 2007Q3

REPORT INFORMATION
  Report Type: 
  Country: None (occurrence: None)
  Receive Date: 20070906
  Receipt Date: 20070827
  Transmission Date: 20080115
  Serious: Yes (Hospitalization)
  Sender: FDA-Public Use
  Company Number: TCI2007A03691

PATIENT
  Age: 81 Year
  Sex: Male

DRUGS (6)
  1. ACTOS [Suspect]
     Indication: TYPE 2 DIABETES MELLITUS
     Dosage: 15 MG (15 MG, 1 IN 1 D) PER ORAL
     Route: 048
     Dates: start: 20060523, end: 20070719
  2. TSUSANTO [Suspect]
     Indication: GAIT DISTURBANCE
     Dosage: 0.5 SACHET (0.5 SACHET, 1 D) PER ORAL
     Route: 048
     Dates: start: 20070623, end: 20070718
  3. TSUSANTO [Suspect]
     Indication: PAIN IN EXTREMITY
     Dosage: 0.5 SACHET (0.5 SACHET, 1 D) PER ORAL
     Route: 048
     Dates: start: 20070623, end: 20070718
  4. ALINAMIN-F (FURSULTIAMINE) [Concomitant]
  5. METHYCOBAL (MECOBALAMIN) [Concomitant]
  6. PRORENAL (LIMAPROST) [Concomitant]

REACTIONS (1)
  - HEPATITIS B [None]
